FAERS Safety Report 14028645 (Version 1)
Quarter: 2017Q3

REPORT INFORMATION
  Report Type: Spontaneous
  Country: US (occurrence: US)
  Receive Date: 20170930
  Receipt Date: 20170930
  Transmission Date: 20171128
  Serious: No
  Sender: FDA-Public Use
  Company Number: US-SA-2017SA061884

PATIENT
  Age: 55 Year
  Sex: Female

DRUGS (16)
  1. VITAMIN D [Concomitant]
     Active Substance: CHOLECALCIFEROL
     Dosage: DOSE:50000 UNIT(S)
  2. ALPRAZOLAM. [Concomitant]
     Active Substance: ALPRAZOLAM
  3. PROAIR HFA [Concomitant]
     Active Substance: ALBUTEROL SULFATE
  4. PROGESTERONE. [Concomitant]
     Active Substance: PROGESTERONE
  5. COLLAGENASE SANTYL [Concomitant]
     Active Substance: COLLAGENASE CLOSTRIDIUM HISTOLYTICUM
  6. AMPYRA [Concomitant]
     Active Substance: DALFAMPRIDINE
  7. BACLOFEN. [Concomitant]
     Active Substance: BACLOFEN
  8. VITAMIN A [Concomitant]
     Active Substance: VITAMIN A
     Dosage: DOSE:10000 UNIT(S)
  9. NIFEDIPINE. [Concomitant]
     Active Substance: NIFEDIPINE
  10. AMPHETAMINE/DEXTROAMPHETAMINE [Concomitant]
  11. CEFDINIR. [Concomitant]
     Active Substance: CEFDINIR
  12. AUBAGIO [Suspect]
     Active Substance: TERIFLUNOMIDE
     Indication: MULTIPLE SCLEROSIS
     Route: 048
     Dates: start: 20161007
  13. TRAZODONE [Concomitant]
     Active Substance: TRAZODONE HYDROCHLORIDE
  14. ZINC. [Concomitant]
     Active Substance: ZINC
  15. TYSABRI [Concomitant]
     Active Substance: NATALIZUMAB
     Dosage: DOSE: 300/15 ML
  16. SAVELLA [Concomitant]
     Active Substance: MILNACIPRAN HYDROCHLORIDE

REACTIONS (1)
  - Skin reaction [Not Recovered/Not Resolved]
